FAERS Safety Report 20712269 (Version 1)
Quarter: 2022Q2

REPORT INFORMATION
  Report Type: Spontaneous
  Country: ES (occurrence: ES)
  Receive Date: 20220415
  Receipt Date: 20220415
  Transmission Date: 20220721
  Serious: Yes (Death, Life-Threatening, Other)
  Sender: FDA-Public Use
  Company Number: ES-AMGEN-ESPSP2022060141

PATIENT

DRUGS (3)
  1. PANITUMUMAB [Suspect]
     Active Substance: PANITUMUMAB
     Indication: Colorectal cancer metastatic
     Dosage: UNK
     Route: 065
  2. TIPIRACIL HYDROCHLORIDE\TRIFLURIDINE [Suspect]
     Active Substance: TIPIRACIL HYDROCHLORIDE\TRIFLURIDINE
     Indication: Colorectal cancer metastatic
     Dosage: 28-DAY CYCLE
     Route: 048
  3. CETUXIMAB [Suspect]
     Active Substance: CETUXIMAB
     Indication: Colorectal cancer metastatic
     Dosage: UNK
     Route: 065

REACTIONS (12)
  - Death [Fatal]
  - Neutropenia [Unknown]
  - Nausea [Unknown]
  - Anaemia [Unknown]
  - Thrombocytopenia [Unknown]
  - Diarrhoea [Unknown]
  - Asthenia [Unknown]
  - Renal impairment [Unknown]
  - Febrile neutropenia [Unknown]
  - Vomiting [Unknown]
  - Decreased appetite [Unknown]
  - Colorectal cancer metastatic [Unknown]
